FAERS Safety Report 25498605 (Version 1)
Quarter: 2025Q3

REPORT INFORMATION
  Report Type: Spontaneous
  Country: CN (occurrence: CN)
  Receive Date: 20250701
  Receipt Date: 20250701
  Transmission Date: 20251020
  Serious: Yes (Death, Life-Threatening, Hospitalization)
  Sender: CHIESI
  Company Number: CN-CHIESI-2025CHF04448

PATIENT
  Age: 0 Year
  Sex: Male

DRUGS (1)
  1. CUROSURF [Suspect]
     Active Substance: PORACTANT ALFA
     Indication: Acute respiratory distress syndrome
     Route: 038
     Dates: start: 20231002

REACTIONS (12)
  - Multiple organ dysfunction syndrome [Fatal]
  - Acute respiratory failure [Fatal]
  - Circulatory collapse [Fatal]
  - Capillary leak syndrome [Not Recovered/Not Resolved]
  - Disseminated intravascular coagulation [Not Recovered/Not Resolved]
  - Pneumonitis [Not Recovered/Not Resolved]
  - Enteritis necroticans [Not Recovered/Not Resolved]
  - Central nervous system infection [Not Recovered/Not Resolved]
  - Tricuspid valve incompetence [Not Recovered/Not Resolved]
  - Septic shock [Not Recovered/Not Resolved]
  - Patent ductus arteriosus [Not Recovered/Not Resolved]
  - Off label use [Unknown]

NARRATIVE: CASE EVENT DATE: 20231001
